FAERS Safety Report 11228641 (Version 3)
Quarter: 2015Q3

REPORT INFORMATION
  Report Type: Spontaneous
  Country: US (occurrence: US)
  Receive Date: 20150630
  Receipt Date: 20150729
  Transmission Date: 20151125
  Serious: Yes (Other)
  Sender: FDA-Public Use
  Company Number: US-AMGEN-USASP2015062110

PATIENT
  Age: 62 Year
  Sex: Female

DRUGS (1)
  1. PROLIA [Suspect]
     Active Substance: DENOSUMAB
     Indication: PRODUCT USED FOR UNKNOWN INDICATION
     Dosage: UNK, Q6MO
     Route: 065
     Dates: start: 201206

REACTIONS (15)
  - Pain in jaw [Unknown]
  - Toothache [Unknown]
  - Nausea [Unknown]
  - Contusion [Unknown]
  - Tooth disorder [Unknown]
  - Diaphragmatic paralysis [Unknown]
  - Impaired healing [Unknown]
  - Procedural pain [Unknown]
  - Inappropriate schedule of drug administration [Unknown]
  - Tooth fracture [Unknown]
  - Malaise [Unknown]
  - Mouth haemorrhage [Unknown]
  - General physical health deterioration [Unknown]
  - Oxygen supplementation [Unknown]
  - Cervical vertebral fracture [Unknown]

NARRATIVE: CASE EVENT DATE: 201503
